FAERS Safety Report 19002686 (Version 1)
Quarter: 2021Q1

REPORT INFORMATION
  Report Type: Spontaneous
  Country: US (occurrence: US)
  Receive Date: 20210312
  Receipt Date: 20210312
  Transmission Date: 20210420
  Serious: Yes (Hospitalization)
  Sender: FDA-Public Use
  Company Number: None

PATIENT
  Age: 58 Year
  Sex: Female

DRUGS (7)
  1. CYMBALTA [Concomitant]
     Active Substance: DULOXETINE HYDROCHLORIDE
  2. LEVOTHRYOXINE [Concomitant]
     Active Substance: LEVOTHYROXINE
  3. NORCO [Concomitant]
     Active Substance: ACETAMINOPHEN\HYDROCODONE BITARTRATE
  4. ASPIRIN. [Concomitant]
     Active Substance: ASPIRIN
  5. LIPITOR [Concomitant]
     Active Substance: ATORVASTATIN CALCIUM
  6. MULT?VIT [Concomitant]
  7. HUMIRA [Suspect]
     Active Substance: ADALIMUMAB
     Indication: PRODUCT USED FOR UNKNOWN INDICATION
     Dosage: OTHER FREQUENCY:Q2WKS;?
     Route: 058
     Dates: start: 20200109

REACTIONS (2)
  - Therapy interrupted [None]
  - Foot operation [None]

NARRATIVE: CASE EVENT DATE: 20210301
